FAERS Safety Report 20883383 (Version 4)
Quarter: 2022Q2

REPORT INFORMATION
  Report Type: Report from Study
  Country: ES (occurrence: ES)
  Receive Date: 20220527
  Receipt Date: 20220622
  Transmission Date: 20220720
  Serious: Yes (Hospitalization, Other)
  Sender: FDA-Public Use
  Company Number: ES-GILEAD-2022-0582201

PATIENT
  Age: 65 Year
  Sex: Male
  Weight: 76 kg

DRUGS (61)
  1. BREXUCABTAGENE AUTOLEUCEL [Suspect]
     Active Substance: BREXUCABTAGENE AUTOLEUCEL
     Indication: Mantle cell lymphoma
     Dosage: UNK; 1.6 - 2.4X106 ANTI-CD19 CAR+T CELL /KG
     Route: 042
     Dates: start: 20220509, end: 20220509
  2. CYCLOPHOSPHAMIDE [Suspect]
     Active Substance: CYCLOPHOSPHAMIDE
     Indication: Bone marrow conditioning regimen
     Dosage: 943.3
     Route: 042
     Dates: start: 20220504, end: 20220506
  3. FLUDARABINE [Suspect]
     Active Substance: FLUDARABINE PHOSPHATE
     Indication: Bone marrow conditioning regimen
     Dosage: 57
     Route: 042
     Dates: start: 20220504, end: 20220506
  4. MESNA [Suspect]
     Active Substance: MESNA
     Indication: Prophylaxis
     Dosage: 471.66
     Route: 042
     Dates: start: 20220504, end: 20220506
  5. OMEPRAZOLE [Concomitant]
     Active Substance: OMEPRAZOLE
     Dosage: 20,MG,DAILY
     Route: 048
     Dates: start: 2012
  6. ALLOPURINOL [Concomitant]
     Active Substance: ALLOPURINOL
     Dosage: 300,MG,DAILY
     Route: 048
     Dates: start: 20220318
  7. ALLOPURINOL [Concomitant]
     Active Substance: ALLOPURINOL
     Dosage: 300,MG,DAILY
     Route: 048
     Dates: start: 20220318, end: 20220519
  8. OMEPRAZOLE [Concomitant]
     Active Substance: OMEPRAZOLE
     Dosage: 20,MG,DAILY
     Route: 048
     Dates: start: 2012, end: 20220515
  9. OMEPRAZOLE [Concomitant]
     Active Substance: OMEPRAZOLE
     Dosage: 20,MG,DAILY
     Route: 048
     Dates: start: 20220528
  10. METAMIZOL [Concomitant]
     Active Substance: METAMIZOLE SODIUM
     Dosage: 0.5,OTHER,ONCE
     Route: 042
     Dates: start: 20220414, end: 20220514
  11. METAMIZOL [Concomitant]
     Active Substance: METAMIZOLE SODIUM
     Dosage: 0.5,OTHER,ONCE
     Route: 042
     Dates: start: 20220515, end: 20220515
  12. TRIMETOPRIME/SULFAMETOXAZOL [Concomitant]
     Dosage: 160/800,MG,TWICE DAILY
     Route: 048
     Dates: start: 20220503, end: 20220508
  13. ONDANSETRON [Concomitant]
     Active Substance: ONDANSETRON
     Dosage: 8,MG,THREE TIMES DAILY
     Route: 048
     Dates: start: 20220503, end: 20220508
  14. METOCLOPRAMIDE [Concomitant]
     Active Substance: METOCLOPRAMIDE
     Dosage: 1,OTHER,DAILY
     Route: 048
     Dates: start: 20220503, end: 20220508
  15. FUROSEMIDE [Concomitant]
     Active Substance: FUROSEMIDE
     Dosage: 20,MG,ONCE
     Route: 048
     Dates: start: 20220504, end: 20220504
  16. FUROSEMIDE [Concomitant]
     Active Substance: FUROSEMIDE
     Dosage: 20,MG,OTHER
     Route: 042
     Dates: start: 20220508, end: 20220527
  17. BISOPROLOL [Concomitant]
     Active Substance: BISOPROLOL
     Dosage: 2.5,MG,DAILY
     Route: 048
     Dates: start: 20220505, end: 20220519
  18. ATORVASTATIN [Concomitant]
     Active Substance: ATORVASTATIN
     Dosage: 80,MG,DAILY
     Route: 048
     Dates: start: 20220505, end: 20220508
  19. ACETYL SALYCILIC ACID [Concomitant]
     Dosage: 100,MG,DAILY
     Route: 048
     Dates: start: 20220505, end: 20220519
  20. ACETYL SALYCILIC ACID [Concomitant]
     Dosage: 100,MG,DAILY
     Route: 048
     Dates: start: 20220523
  21. LORAZEPAM [Concomitant]
     Active Substance: LORAZEPAM
     Dosage: 1,MG,DAILY
     Route: 048
     Dates: start: 20220508
  22. ACYCLOVIR [Concomitant]
     Active Substance: ACYCLOVIR
     Dosage: 400,MG,TWICE DAILY
     Route: 048
     Dates: start: 20220508, end: 20220519
  23. ACYCLOVIR [Concomitant]
     Active Substance: ACYCLOVIR
     Dosage: 400,MG,TWICE DAILY
     Route: 042
     Dates: start: 20220520, end: 20220527
  24. ACYCLOVIR [Concomitant]
     Active Substance: ACYCLOVIR
     Dosage: 800,MG,TWICE DAILY
     Route: 048
     Dates: start: 20220528
  25. ACYCLOVIR [Concomitant]
     Active Substance: ACYCLOVIR
     Dosage: 800,MG,TWICE DAILY
     Route: 048
     Dates: start: 20220503, end: 20220504
  26. ACYCLOVIR [Concomitant]
     Active Substance: ACYCLOVIR
     Dosage: 400,MG,TWICE DAILY
     Route: 048
     Dates: start: 20220505, end: 20220519
  27. CLORHEXIDINE [Concomitant]
     Dosage: 15,ML,THREE TIMES DAILY
     Route: 050
     Dates: start: 20220509
  28. MYCOSTATIN [Concomitant]
     Active Substance: NYSTATIN
     Dosage: 5,ML,THREE TIMES DAILY
     Route: 050
     Dates: start: 20220509
  29. SODIUM BEMIPARINE [Concomitant]
     Dosage: 3500,IU,DAILY
     Route: 058
     Dates: start: 20220509, end: 20220512
  30. SODIUM BEMIPARINE [Concomitant]
     Dosage: 2500,IU,DAILY
     Route: 058
     Dates: start: 20220513, end: 20220518
  31. SODIUM BEMIPARINE [Concomitant]
     Dosage: 2500,IU,DAILY
     Route: 058
     Dates: start: 20220520, end: 20220522
  32. SODIUM BEMIPARINE [Concomitant]
     Dosage: 3500,IU,DAILY
     Route: 058
     Dates: start: 20220523, end: 20220605
  33. MAGNESIUM SULFATE [Concomitant]
     Active Substance: MAGNESIUM SULFATE
     Dosage: 1.5,G,OTHER
     Route: 042
     Dates: start: 20220509, end: 20220527
  34. ACETAMINOPHEN [Concomitant]
     Active Substance: ACETAMINOPHEN
     Dosage: 1,G,ONCE
     Route: 042
     Dates: start: 20220509, end: 20220509
  35. ACETAMINOPHEN [Concomitant]
     Active Substance: ACETAMINOPHEN
     Dosage: 1,G,ONCE
     Route: 042
     Dates: start: 20220512, end: 20220512
  36. ACETAMINOPHEN [Concomitant]
     Active Substance: ACETAMINOPHEN
     Dosage: 1,G,ONCE
     Route: 042
     Dates: start: 20220513, end: 20220513
  37. DEXCLORPHENIDRAMINE [Concomitant]
     Dosage: 5,MG,ONCE
     Route: 042
     Dates: start: 20220509, end: 20220509
  38. URSODEOXICOLIC ACID [Concomitant]
     Dosage: 300,MG,DAILY
     Route: 048
     Dates: start: 20220512
  39. PIPERACILINE/TAZOBACTAM [Concomitant]
     Dosage: 4/0.5,G,FOUR TIMES DAILY
     Route: 042
     Dates: start: 20220512, end: 20220519
  40. TOCILIZUMAB [Concomitant]
     Active Substance: TOCILIZUMAB
     Dosage: 584,MG,ONCE
     Route: 042
     Dates: start: 20220513, end: 20220513
  41. TOCILIZUMAB [Concomitant]
     Active Substance: TOCILIZUMAB
     Dosage: 584,MG,ONCE
     Route: 042
     Dates: start: 20220514, end: 20220514
  42. TEICOPLANIN [Concomitant]
     Active Substance: TEICOPLANIN
     Dosage: 800,MG,DAILY
     Route: 042
     Dates: start: 20220515, end: 20220527
  43. TEICOPLANIN [Concomitant]
     Active Substance: TEICOPLANIN
     Dosage: 600,MG,TWICE DAILY
     Route: 042
     Dates: start: 20220513, end: 20220514
  44. CALCIUM [Concomitant]
     Active Substance: CALCIUM
     Dosage: 1,OTHER,ONCE
     Route: 042
     Dates: start: 20220513, end: 20220513
  45. POTASIUM CLORURE [Concomitant]
     Dosage: 40,OTHER,OTHER
     Route: 042
     Dates: start: 20220514, end: 20220525
  46. CALCIUM CLORURE [Concomitant]
     Dosage: 1,G,OTHER
     Route: 042
     Dates: start: 20220514, end: 20220517
  47. AMIKACIN [Concomitant]
     Active Substance: AMIKACIN
     Dosage: 115,MG,TWICE DAILY
     Route: 042
     Dates: start: 20220515, end: 20220515
  48. AMIKACIN [Concomitant]
     Active Substance: AMIKACIN
     Dosage: 1500,MG,DAILY
     Route: 042
     Dates: start: 20220517, end: 20220520
  49. AMIKACIN [Concomitant]
     Active Substance: AMIKACIN
     Dosage: 1700,MG,DAILY
     Route: 042
     Dates: start: 20220521, end: 20220521
  50. ANIDULAFUNGIN [Concomitant]
     Active Substance: ANIDULAFUNGIN
     Dosage: 100,MG,DAILY
     Route: 042
     Dates: start: 20220516, end: 20220529
  51. PANTOPRAZOLE SODIUM [Concomitant]
     Active Substance: PANTOPRAZOLE SODIUM
     Dosage: 40,MG,DAILY
     Route: 048
     Dates: start: 20220516, end: 20220527
  52. VITAMIN K [Concomitant]
     Active Substance: PHYTONADIONE
     Dosage: 10,MG,ONCE
     Route: 042
     Dates: start: 20220517, end: 20220517
  53. PROPOFOL [Concomitant]
     Active Substance: PROPOFOL
     Dosage: 1,OTHER,ONCE
     Route: 042
     Dates: start: 20220519, end: 20220519
  54. MEROPENEM [Concomitant]
     Active Substance: MEROPENEM
     Dosage: 2000,MG,THREE TIMES DAILY
     Route: 042
     Dates: start: 20220520, end: 20220525
  55. MEROPENEM [Concomitant]
     Active Substance: MEROPENEM
     Dosage: 1000,MG,THREE TIMES DAILY
     Route: 042
     Dates: start: 20220526, end: 20220529
  56. FIBRINOGEN [Concomitant]
     Active Substance: FIBRINOGEN HUMAN
     Dosage: 1,G,ONCE
     Route: 042
     Dates: start: 20220520, end: 20220520
  57. FIBRINOGEN [Concomitant]
     Active Substance: FIBRINOGEN HUMAN
     Dosage: 2,G,ONCE
     Route: 042
     Dates: start: 20220523, end: 20220523
  58. POTASSIUM PHOSPHATE [Concomitant]
     Active Substance: POTASSIUM PHOSPHATE
     Dosage: 10,OTHER,OTHER
     Route: 042
     Dates: start: 20220525, end: 20220529
  59. POTASIUM [Concomitant]
     Dosage: 600,MG,TWICE DAILY
     Route: 048
     Dates: start: 20220530
  60. PREDNISONE [Concomitant]
     Active Substance: PREDNISONE
     Dosage: 10,MG,DAILY
     Route: 048
     Dates: start: 20220531, end: 20220601
  61. PREDNISONE [Concomitant]
     Active Substance: PREDNISONE
     Dosage: 5,MG,DAILY
     Route: 048
     Dates: start: 20220602, end: 20220603

REACTIONS (13)
  - Postural tremor [Recovered/Resolved]
  - Psychomotor hyperactivity [Recovered/Resolved]
  - Facial paresis [Recovered/Resolved]
  - Asthenia [Recovered/Resolved]
  - Tremor [Recovered/Resolved]
  - Aphasia [Recovered/Resolved]
  - Aphasia [Recovered/Resolved]
  - Cytokine release syndrome [Recovered/Resolved]
  - Pyrexia [Recovered/Resolved]
  - Pyrexia [Recovered/Resolved]
  - Hepatotoxicity [Recovered/Resolved]
  - Hepatotoxicity [Recovered/Resolved]
  - Hepatotoxicity [Recovered/Resolved]

NARRATIVE: CASE EVENT DATE: 20220512
